FAERS Safety Report 23495526 (Version 1)
Quarter: 2024Q1

REPORT INFORMATION
  Report Type: Spontaneous
  Country: US (occurrence: US)
  Receive Date: 20240207
  Receipt Date: 20240207
  Transmission Date: 20240410
  Serious: No
  Sender: FDA-Public Use
  Company Number: US-PFIZER INC-202400034997

PATIENT
  Age: 36 Year
  Sex: Male

DRUGS (1)
  1. OXBRYTA [Suspect]
     Active Substance: VOXELOTOR
     Dosage: 500 MG., 3 TABLETS, ONCE DAILY
     Route: 048
     Dates: start: 20220304

REACTIONS (2)
  - Somnolence [Unknown]
  - Product dose omission issue [Unknown]
